FAERS Safety Report 5916732-X (Version None)
Quarter: 2008Q4

REPORT INFORMATION
  Report Type: 
  Country: None (occurrence: None)
  Receive Date: 20081009
  Receipt Date: 20080924
  Transmission Date: 20090506
  Serious: Yes (Hospitalization)
  Sender: FDA-Public Use
  Company Number: ABX74-08-0395

PATIENT
  Age: 55 Year
  Sex: Female
  Weight: 89 kg

DRUGS (3)
  1. ABRAXANE [Suspect]
     Indication: BREAST CANCER METASTATIC
     Dosage: (291 MG), INTRAVENOUS
     Route: 042
     Dates: start: 20080905
  2. GEMZAR [Suspect]
     Indication: BREAST CANCER METASTATIC
     Dosage: (2910 MG), INTRAVENOUS
     Route: 042
     Dates: start: 20080905
  3. AVASTIN [Suspect]
     Indication: BREAST CANCER METASTATIC
     Dosage: (886 MG), INTRAVENOUS
     Route: 042
     Dates: start: 20080905

REACTIONS (38)
  - ABDOMINAL PAIN LOWER [None]
  - ALANINE AMINOTRANSFERASE INCREASED [None]
  - ASPARTATE AMINOTRANSFERASE INCREASED [None]
  - ATELECTASIS [None]
  - BLOOD ALKALINE PHOSPHATASE INCREASED [None]
  - BLOOD BILIRUBIN INCREASED [None]
  - BLOOD CREATININE INCREASED [None]
  - BLOOD CULTURE POSITIVE [None]
  - BLOOD LACTIC ACID INCREASED [None]
  - BLOOD PRESSURE SYSTOLIC INCREASED [None]
  - BLOOD UREA INCREASED [None]
  - BRONCHIAL WALL THICKENING [None]
  - CATHETER SITE DISCHARGE [None]
  - CENTRAL LINE INFECTION [None]
  - CHILLS [None]
  - CONFUSIONAL STATE [None]
  - DECREASED APPETITE [None]
  - DIAPHRAGMATIC DISORDER [None]
  - ESCHERICHIA INFECTION [None]
  - HEART RATE INCREASED [None]
  - HEPATIC FUNCTION ABNORMAL [None]
  - HYPOCALCAEMIA [None]
  - HYPOPHAGIA [None]
  - HYPOTENSION [None]
  - INTERSTITIAL LUNG DISEASE [None]
  - JAUNDICE [None]
  - MALAISE [None]
  - OROPHARYNGEAL PAIN [None]
  - PLEURAL EFFUSION [None]
  - PNEUMONIA [None]
  - PRODUCTIVE COUGH [None]
  - PYREXIA [None]
  - RALES [None]
  - RESPIRATORY RATE INCREASED [None]
  - RETROPERITONEAL LYMPHADENOPATHY [None]
  - SEPSIS [None]
  - SEPTIC SHOCK [None]
  - SPUTUM DISCOLOURED [None]
